FAERS Safety Report 17260668 (Version 1)
Quarter: 2020Q1

REPORT INFORMATION
  Report Type: Spontaneous
  Country: GR (occurrence: GR)
  Receive Date: 20200113
  Receipt Date: 20200113
  Transmission Date: 20200409
  Serious: Yes (Death, Other)
  Sender: FDA-Public Use
  Company Number: GR-SA-2020SA004387

PATIENT
  Age: 80 Year
  Sex: Female

DRUGS (4)
  1. FLUOROURACIL;FOLINIC ACID [Suspect]
     Active Substance: FLUOROURACIL\LEUCOVORIN
     Indication: RECTAL CANCER
     Dosage: UNK UNK, QCY
  2. FLUOROURACIL;FOLINIC ACID [Suspect]
     Active Substance: FLUOROURACIL\LEUCOVORIN
     Dosage: UNK UNK, QCY
  3. OXALIPLATIN. [Suspect]
     Active Substance: OXALIPLATIN
     Indication: RECTAL CANCER
     Dosage: UNK UNK, QCY
  4. OXALIPLATIN. [Suspect]
     Active Substance: OXALIPLATIN
     Dosage: UNK UNK, QCY

REACTIONS (10)
  - Drug ineffective [Unknown]
  - Thrombocytopenia [Unknown]
  - Anaemia [Unknown]
  - Urinary tract infection [Fatal]
  - Bone marrow infiltration [Unknown]
  - Vision blurred [Unknown]
  - Sepsis [Fatal]
  - Hemiparesis [Unknown]
  - Neurotoxicity [Unknown]
  - Neoplasm recurrence [Unknown]
